FAERS Safety Report 8838167 (Version 1)
Quarter: 2012Q4

REPORT INFORMATION
  Report Type: Spontaneous
  Country: US (occurrence: None)
  Receive Date: 20121011
  Receipt Date: 20121011
  Transmission Date: 20130627
  Serious: No
  Sender: FDA-Public Use
  Company Number: None

PATIENT
  Age: 70 Year
  Sex: Female
  Weight: 73.94 kg

DRUGS (1)
  1. MONTELUKAST [Suspect]
     Indication: ALLERGIC RHINITIS
     Dates: start: 20120923, end: 20120923

REACTIONS (4)
  - Paraesthesia [None]
  - Hypoaesthesia [None]
  - Blood pressure increased [None]
  - Headache [None]
